FAERS Safety Report 10695707 (Version 1)
Quarter: 2015Q1

REPORT INFORMATION
  Report Type: Spontaneous
  Country: GB (occurrence: GB)
  Receive Date: 20150107
  Receipt Date: 20150107
  Transmission Date: 20150721
  Serious: Yes (Hospitalization)
  Sender: FDA-Public Use
  Company Number: GB-JNJFOC-20141218281

PATIENT
  Sex: Female

DRUGS (1)
  1. SIMPONI [Suspect]
     Active Substance: GOLIMUMAB
     Indication: PRODUCT USED FOR UNKNOWN INDICATION
     Dosage: INJECTED ON 09-DEC-2014 AND 19-DEC-2014.
     Route: 058
     Dates: start: 20141209

REACTIONS (8)
  - Lower respiratory tract infection [Unknown]
  - Blood potassium decreased [Unknown]
  - Inappropriate schedule of drug administration [Unknown]
  - Vomiting [Unknown]
  - Sinusitis [Unknown]
  - Diarrhoea [Unknown]
  - Rash [Unknown]
  - Pain of skin [Unknown]
